FAERS Safety Report 5114515-4 (Version None)
Quarter: 2006Q3

REPORT INFORMATION
  Report Type: 
  Country: None (occurrence: None)
  Receive Date: 20060921
  Receipt Date: 20060905
  Transmission Date: 20061208
  Serious: Yes (Hospitalization)
  Sender: FDA-Public Use
  Company Number: L06-USA-03581-01

PATIENT
  Age: 58 Year
  Sex: Female

DRUGS (4)
  1. CARBAMAZEPINE [Suspect]
     Indication: CONVULSION
     Dosage: 200 MG QID
     Dates: end: 19880201
  2. CARBAMAZEPINE [Suspect]
     Indication: CONVULSION
     Dosage: 100 MG QID
     Dates: start: 19880201, end: 19880201
  3. LEVOTHYROXINE SODIUM [Suspect]
     Dosage: 50 MCG QD
     Dates: start: 19880201
  4. ALPRAZOLAM [Concomitant]

REACTIONS (13)
  - ANTICONVULSANT TOXICITY [None]
  - ATRIOVENTRICULAR BLOCK SECOND DEGREE [None]
  - BLOOD THYROID STIMULATING HORMONE INCREASED [None]
  - BRADYCARDIA [None]
  - CARDIAC DISORDER [None]
  - COORDINATION ABNORMAL [None]
  - ELECTROCARDIOGRAM T WAVE INVERSION [None]
  - HYPOTENSION [None]
  - HYPOTHERMIA [None]
  - SINUS ARRHYTHMIA [None]
  - SINUS BRADYCARDIA [None]
  - SUPRAVENTRICULAR EXTRASYSTOLES [None]
  - THYROXINE DECREASED [None]
